FAERS Safety Report 7062616-6 (Version None)
Quarter: 2010Q4

REPORT INFORMATION
  Report Type: 
  Country: None (occurrence: None)
  Receive Date: 20101026
  Receipt Date: 20091204
  Transmission Date: 20110411
  Serious: No
  Sender: FDA-Public Use
  Company Number: US-PFIZER INC-2009283860

PATIENT
  Sex: Female

DRUGS (2)
  1. LIPITOR [Suspect]
     Indication: LOW DENSITY LIPOPROTEIN INCREASED
     Dosage: ONCE DAILY
     Route: 048
  2. TEGRETOL [Concomitant]

REACTIONS (4)
  - BLOOD CHOLESTEROL ABNORMAL [None]
  - LOW DENSITY LIPOPROTEIN ABNORMAL [None]
  - MUSCLE FATIGUE [None]
  - MYALGIA [None]
